FAERS Safety Report 12654177 (Version 1)
Quarter: 2016Q3

REPORT INFORMATION
  Report Type: Other
  Country: JP (occurrence: JP)
  Receive Date: 20160816
  Receipt Date: 20160816
  Transmission Date: 20161109
  Serious: Yes (Other)
  Sender: FDA-Public Use
  Company Number: JP-LUPIN PHARMACEUTICALS INC.-2016-03549

PATIENT
  Age: 9 Year
  Sex: Male

DRUGS (4)
  1. OAROKISASHIN (OFLOXACIN) [Suspect]
     Active Substance: OFLOXACIN
     Indication: SWELLING
     Route: 047
  2. VOLTAREN [Suspect]
     Active Substance: DICLOFENAC SODIUM
     Indication: SWELLING
     Route: 047
  3. LEVOFLOXACIN. [Suspect]
     Active Substance: LEVOFLOXACIN
     Indication: SWELLING
     Route: 047
  4. VOLTAREN [Suspect]
     Active Substance: DICLOFENAC SODIUM
     Indication: SWELLING
     Route: 047

REACTIONS (5)
  - Nausea [None]
  - Pallor [None]
  - Angioedema [Unknown]
  - Asthma [None]
  - Dyspnoea [None]
